FAERS Safety Report 17366488 (Version 1)
Quarter: 2020Q1

REPORT INFORMATION
  Report Type: Spontaneous
  Country: HU (occurrence: HU)
  Receive Date: 20200204
  Receipt Date: 20200204
  Transmission Date: 20200409
  Serious: Yes (Other)
  Sender: FDA-Public Use
  Company Number: HU-BAUSCH-BL-2020-002818

PATIENT
  Age: 29 Year
  Sex: Female

DRUGS (4)
  1. ATOSIBAN [Suspect]
     Active Substance: ATOSIBAN
     Indication: TOCOLYSIS
     Route: 065
  2. AMPICILLIN [Suspect]
     Active Substance: AMPICILLIN
     Indication: INFLAMMATORY MARKER TEST
     Route: 042
  3. DEXAMETHASONE. [Suspect]
     Active Substance: DEXAMETHASONE
     Indication: NEONATAL RESPIRATORY DISTRESS SYNDROME PROPHYLAXIS
     Route: 065
  4. ATOSIBAN [Suspect]
     Active Substance: ATOSIBAN
     Route: 065

REACTIONS (5)
  - Premature rupture of membranes [Recovered/Resolved]
  - Live birth [Unknown]
  - Premature separation of placenta [Recovered/Resolved]
  - Maternal exposure during pregnancy [Unknown]
  - Haemorrhage in pregnancy [Recovered/Resolved]
